FAERS Safety Report 11564135 (Version 1)
Quarter: 2015Q3

REPORT INFORMATION
  Report Type: Spontaneous
  Country: US (occurrence: US)
  Receive Date: 20150916
  Receipt Date: 20150916
  Transmission Date: 20151125
  Serious: No
  Sender: FDA-Public Use
  Company Number: US-ELI_LILLY_AND_COMPANY-US200902007511

PATIENT
  Sex: Female
  Weight: 54.42 kg

DRUGS (1)
  1. FORTEO [Suspect]
     Active Substance: TERIPARATIDE
     Dosage: UNK, UNK
     Dates: start: 200811, end: 200902

REACTIONS (10)
  - Muscle spasms [Recovering/Resolving]
  - Pain in extremity [Not Recovered/Not Resolved]
  - Chest discomfort [Not Recovered/Not Resolved]
  - Middle insomnia [Recovering/Resolving]
  - Dyspnoea [Not Recovered/Not Resolved]
  - Weight decreased [Recovered/Resolved]
  - Laryngeal discomfort [Recovering/Resolving]
  - Dizziness [Recovering/Resolving]
  - Laryngitis [Not Recovered/Not Resolved]
  - Weight gain poor [Unknown]

NARRATIVE: CASE EVENT DATE: 2009
